FAERS Safety Report 7579566-9 (Version None)
Quarter: 2011Q2

REPORT INFORMATION
  Report Type: 
  Country: None (occurrence: None)
  Receive Date: 20110622
  Receipt Date: 20110607
  Transmission Date: 20111010
  Serious: Yes (Other)
  Sender: FDA-Public Use
  Company Number: AUR-APL-2011-02846

PATIENT
  Age: 83 Year
  Sex: Male

DRUGS (18)
  1. LISINOPRIL [Suspect]
     Indication: PRODUCT USED FOR UNKNOWN INDICATION
     Dosage: (5 MG,EVERY MORNING), ORAL
     Route: 048
     Dates: start: 20071205, end: 20080527
  2. XOPENEX [Concomitant]
  3. TIOTROPIUM BROMIDE (TIOTROPIUM BROMIDE) [Concomitant]
  4. NABUMETONE [Concomitant]
  5. PULMICORT [Suspect]
     Indication: PRODUCT USED FOR UNKNOWN INDICATION
     Dosage: 0.5 MG, 2 ML, 1 TWO TIMES A DAY,RESPIRATORY
     Route: 055
     Dates: start: 20051125, end: 20100413
  6. LOMOTIL (LOMOTIL /00034001/) [Concomitant]
  7. LASIX [Concomitant]
  8. DIOVAN [Concomitant]
  9. SURFAK (DOCUSATE CALCIUM) [Concomitant]
  10. CITALOPRAM HYDROBROMIDE [Concomitant]
  11. HYDROCODONE (HYDROCODONE) [Concomitant]
  12. SIMVASTATIN [Concomitant]
  13. ATENOLOL [Suspect]
     Indication: PRODUCT USED FOR UNKNOWN INDICATION
     Dosage: (50 MG,1 D), ORAL
     Route: 048
     Dates: start: 20081021, end: 20081218
  14. TAMSULOSIN HCL [Concomitant]
  15. NEXIUM [Suspect]
     Indication: PRODUCT USED FOR UNKNOWN INDICATION
     Dosage: (40 MG, EVERY MORNING), ORAL
     Route: 048
     Dates: start: 20081008, end: 20090205
  16. MYSOLINE [Concomitant]
  17. TORSEMIDE [Concomitant]
  18. NITROGLYCERIN [Concomitant]

REACTIONS (3)
  - RENAL FAILURE CHRONIC [None]
  - COR PULMONALE [None]
  - MUSCULOSKELETAL DISORDER [None]
